FAERS Safety Report 18424539 (Version 5)
Quarter: 2023Q2

REPORT INFORMATION
  Report Type: Other
  Country: AU (occurrence: AU)
  Receive Date: 20201026
  Receipt Date: 20230630
  Transmission Date: 20230722
  Serious: Yes (Other)
  Sender: FDA-Public Use
  Company Number: AU-002147023-NVSC2020AU252708

PATIENT
  Age: 55 Year
  Sex: Female

DRUGS (5)
  1. OMALIZUMAB [Suspect]
     Active Substance: OMALIZUMAB
     Indication: Mast cell activation syndrome
     Route: 065
     Dates: start: 20200610
  2. OMALIZUMAB [Suspect]
     Active Substance: OMALIZUMAB
     Indication: Anaphylactic reaction
     Route: 065
  3. MONTELUKAST [Concomitant]
     Active Substance: MONTELUKAST SODIUM
     Indication: Product used for unknown indication
     Dosage: 20 MG, QD
     Route: 065
  4. CROMOLYN SODIUM [Concomitant]
     Active Substance: CROMOLYN SODIUM
     Indication: Product used for unknown indication
     Dosage: UNK
     Route: 065
  5. NIZATIDINE [Concomitant]
     Active Substance: NIZATIDINE
     Indication: Product used for unknown indication
     Dosage: 300 MG, QD
     Route: 065

REACTIONS (5)
  - Pruritus [Unknown]
  - Neoplasm malignant [Unknown]
  - Wheezing [Unknown]
  - Diarrhoea [Unknown]
  - Flushing [Unknown]

NARRATIVE: CASE EVENT DATE: 20200610
